FAERS Safety Report 16403320 (Version 1)
Quarter: 2019Q2

REPORT INFORMATION
  Report Type: Spontaneous
  Country: CA (occurrence: CA)
  Receive Date: 20190607
  Receipt Date: 20190607
  Transmission Date: 20190711
  Serious: Yes (Hospitalization)
  Sender: FDA-Public Use
  Company Number: CA-BAUSCH-BL-2019-016266

PATIENT
  Age: 25 Year
  Sex: Male

DRUGS (8)
  1. IRON [Concomitant]
     Active Substance: IRON
     Indication: PRODUCT USED FOR UNKNOWN INDICATION
  2. METRONIDAZOLE. [Suspect]
     Active Substance: METRONIDAZOLE
     Indication: PROPHYLAXIS
     Route: 065
  3. METRONIDAZOLE. [Suspect]
     Active Substance: METRONIDAZOLE
     Indication: PRODUCT USE IN UNAPPROVED INDICATION
  4. PANTOLOC (PANTOPRAZOLE) [Concomitant]
     Indication: PRODUCT USED FOR UNKNOWN INDICATION
  5. ASACOL [Concomitant]
     Active Substance: MESALAMINE
     Indication: PRODUCT USED FOR UNKNOWN INDICATION
  6. INFLECTRA (INFLIXIMAB) [Concomitant]
     Indication: CROHN^S DISEASE
  7. CIPROFLOXACIN HYDROCHLORIDE. [Suspect]
     Active Substance: CIPROFLOXACIN HYDROCHLORIDE
     Indication: PROPHYLAXIS
     Route: 065
  8. ZYPREXA [Concomitant]
     Active Substance: OLANZAPINE
     Indication: PRODUCT USED FOR UNKNOWN INDICATION

REACTIONS (2)
  - Product use in unapproved indication [Not Recovered/Not Resolved]
  - Psychotic disorder [Not Recovered/Not Resolved]
